FAERS Safety Report 25989782 (Version 4)
Quarter: 2025Q4

REPORT INFORMATION
  Report Type: Spontaneous
  Country: US (occurrence: US)
  Receive Date: 20251103
  Receipt Date: 20251217
  Transmission Date: 20260118
  Serious: No
  Sender: JOHNSON AND JOHNSON
  Company Number: US-JNJFOC-20251040526

PATIENT
  Sex: Male

DRUGS (1)
  1. TREMFYA [Suspect]
     Active Substance: GUSELKUMAB
     Indication: Product used for unknown indication
     Dosage: STRENGTH: 100.00 MG / 1.00 ML

REACTIONS (4)
  - Product dose omission issue [Unknown]
  - Device defective [Unknown]
  - Injury associated with device [Unknown]
  - Syringe issue [Unknown]

NARRATIVE: CASE EVENT DATE: 20251031
